FAERS Safety Report 18458626 (Version 1)
Quarter: 2020Q4

REPORT INFORMATION
  Report Type: Spontaneous
  Country: NO (occurrence: NO)
  Receive Date: 20201103
  Receipt Date: 20201103
  Transmission Date: 20210114
  Serious: Yes (Other)
  Sender: FDA-Public Use
  Company Number: NO-MYLANLABS-2020M1090866

PATIENT
  Age: 31 Year
  Sex: Female
  Weight: 75 kg

DRUGS (6)
  1. CETIRIZIN MYLAN 10 MG FILM-COATED TABLETS [Suspect]
     Active Substance: CETIRIZINE HYDROCHLORIDE
     Indication: HYPERSENSITIVITY
  2. CETIRIZIN MYLAN 10 MG FILM-COATED TABLETS [Suspect]
     Active Substance: CETIRIZINE HYDROCHLORIDE
     Indication: DUST ALLERGY
  3. CETIRIZIN MYLAN 10 MG FILM-COATED TABLETS [Suspect]
     Active Substance: CETIRIZINE HYDROCHLORIDE
     Indication: MITE ALLERGY
  4. CETIRIZIN MYLAN 10 MG FILM-COATED TABLETS [Suspect]
     Active Substance: CETIRIZINE HYDROCHLORIDE
     Indication: SEASONAL ALLERGY
     Dosage: 1 DOSAGE FORM, QD
     Dates: start: 20010101, end: 20201001
  5. CETIRIZIN MYLAN 10 MG FILM-COATED TABLETS [Suspect]
     Active Substance: CETIRIZINE HYDROCHLORIDE
     Indication: FOOD ALLERGY
  6. NYCOPLUS MULTI [Concomitant]
     Dosage: UNK

REACTIONS (2)
  - Withdrawal syndrome [Unknown]
  - Pruritus [Not Recovered/Not Resolved]

NARRATIVE: CASE EVENT DATE: 20201002
